FAERS Safety Report 7831767-8 (Version None)
Quarter: 2011Q4

REPORT INFORMATION
  Report Type: 
  Country: None (occurrence: None)
  Receive Date: 20111021
  Receipt Date: 20111010
  Transmission Date: 20120403
  Serious: No
  Sender: FDA-Public Use
  Company Number: DE-ELI_LILLY_AND_COMPANY-DE201106007438

PATIENT
  Age: 61 Year
  Sex: Female

DRUGS (3)
  1. METFORMIN HCL [Concomitant]
  2. BYETTA [Suspect]
     Indication: TYPE 2 DIABETES MELLITUS
     Dosage: 5 UG, UNK
     Route: 058
     Dates: start: 20110610, end: 20110703
  3. ANTIHYPERTENSIVES [Concomitant]

REACTIONS (5)
  - CONSTIPATION [None]
  - CHOLELITHIASIS [None]
  - OFF LABEL USE [None]
  - DRY MOUTH [None]
  - FATIGUE [None]
